FAERS Safety Report 6493399-6 (Version None)
Quarter: 2009Q4

REPORT INFORMATION
  Report Type: 
  Country: None (occurrence: None)
  Receive Date: 20091214
  Receipt Date: 20091207
  Transmission Date: 20100525
  Serious: Yes (Other)
  Sender: FDA-Public Use
  Company Number: JP-EISAI INC.-E0800-00034-SPO-JP

PATIENT
  Age: 57 Year
  Sex: Female

DRUGS (9)
  1. SALAGEN [Suspect]
     Route: 048
     Dates: start: 20090701, end: 20090708
  2. SALIGREN [Suspect]
     Dosage: UNKNOWN
     Route: 048
     Dates: start: 20090101, end: 20090101
  3. ZOLOFT [Suspect]
     Indication: DRUG USE FOR UNKNOWN INDICATION
     Route: 048
  4. LEXOTAN [Concomitant]
     Route: 048
  5. MYSLEE [Concomitant]
     Route: 048
  6. ROHYPNOL [Concomitant]
  7. SEROQUEL [Concomitant]
     Route: 048
  8. MUCOSTA [Concomitant]
     Route: 048
  9. MAGNESIUM OXIDE [Concomitant]
     Route: 065

REACTIONS (1)
  - AKATHISIA [None]
